FAERS Safety Report 4311002-8 (Version None)
Quarter: 2004Q1

REPORT INFORMATION
  Report Type: 
  Country: None (occurrence: None)
  Receive Date: 20040302
  Receipt Date: 20040225
  Transmission Date: 20041129
  Serious: Yes (Hospitalization)
  Sender: FDA-Public Use
  Company Number: KII-1999-0007152

PATIENT
  Sex: Male

DRUGS (2)
  1. OXYCONTIN [Suspect]
     Indication: PAIN
     Dosage: 20MG, Q12H,
  2. MORPHINE SULFATE [Suspect]
     Indication: PAIN
     Dosage: Q4H

REACTIONS (1)
  - RENAL FAILURE [None]
